FAERS Safety Report 25787330 (Version 4)
Quarter: 2025Q4

REPORT INFORMATION
  Report Type: Report from Study
  Country: EU (occurrence: None)
  Receive Date: 20250910
  Receipt Date: 20251201
  Transmission Date: 20260117
  Serious: Yes (Hospitalization, Other)
  Sender: UCB
  Company Number: EU-UCBSA-2025040783

PATIENT
  Age: 47 Year

DRUGS (11)
  1. ROZANOLIXIZUMAB [Suspect]
     Active Substance: ROZANOLIXIZUMAB
     Indication: Myasthenia gravis
     Dosage: 4 MILLILITER
  2. ROZANOLIXIZUMAB [Suspect]
     Active Substance: ROZANOLIXIZUMAB
     Dosage: 4 MILLILITER (280MG/2ML X2)
  3. ROZANOLIXIZUMAB [Suspect]
     Active Substance: ROZANOLIXIZUMAB
     Dosage: 4 MILLILITER
  4. CORTIZONE 10 [Concomitant]
     Active Substance: HYDROCORTISONE
     Indication: Myasthenia gravis
     Dosage: 20 MILLIGRAM, ONCE DAILY (QD)
  5. MESTINON [Concomitant]
     Active Substance: PYRIDOSTIGMINE BROMIDE
     Indication: Myasthenia gravis
     Dosage: UNK (60 MG, TABLET IN THE MORNING + 1 TABLET IN THE EVENING DAILY)
  6. MESTINON [Concomitant]
     Active Substance: PYRIDOSTIGMINE BROMIDE
     Dosage: 4 TABLET DAILY
  7. MESTINON [Concomitant]
     Active Substance: PYRIDOSTIGMINE BROMIDE
     Dosage: AS NEEDED
  8. LANSOPRAZOLE [Concomitant]
     Active Substance: LANSOPRAZOLE
     Indication: Prophylaxis
     Dosage: 30 MILLIGRAM, DAILY
  9. COVERAM [Concomitant]
     Active Substance: AMLODIPINE\PERINDOPRIL
     Indication: Hypertension
     Dosage: UNK (? TABLET IN THE MORNING + ? TABLET IN THE EVENING DAILY)
  10. CIPRALEX [Concomitant]
     Active Substance: ESCITALOPRAM OXALATE
     Indication: Depression
     Dosage: 10 MILLIGRAM, DAILY
  11. ADELCORT [Concomitant]
     Indication: Product used for unknown indication

REACTIONS (8)
  - Myasthenia gravis [Recovered/Resolved]
  - COVID-19 [Recovered/Resolved]
  - Immunosuppression [Not Recovered/Not Resolved]
  - Eyelid ptosis [Not Recovered/Not Resolved]
  - Blood immunoglobulin G decreased [Unknown]
  - Pyrexia [Recovered/Resolved]
  - Chills [Recovered/Resolved]
  - Headache [Not Recovered/Not Resolved]
